FAERS Safety Report 14745576 (Version 1)
Quarter: 2018Q2

REPORT INFORMATION
  Report Type: Spontaneous
  Country: US (occurrence: US)
  Receive Date: 20180411
  Receipt Date: 20180411
  Transmission Date: 20180711
  Serious: No
  Sender: FDA-Public Use
  Company Number: US-AMGEN-USASP2018046987

PATIENT
  Age: 44 Year
  Sex: Female

DRUGS (2)
  1. ENBREL [Suspect]
     Active Substance: ETANERCEPT
     Indication: RHEUMATOID ARTHRITIS
     Dosage: 50 MG, QWK
     Route: 065
     Dates: start: 20180403
  2. INSULIN [Concomitant]
     Active Substance: INSULIN NOS
     Indication: DIABETES MELLITUS
     Dosage: UNK

REACTIONS (8)
  - Hyperhidrosis [Unknown]
  - Throat irritation [Unknown]
  - Dyspnoea [Unknown]
  - Pruritus generalised [Recovering/Resolving]
  - Blood glucose increased [Not Recovered/Not Resolved]
  - Headache [Unknown]
  - Palpitations [Unknown]
  - Rash pruritic [Unknown]

NARRATIVE: CASE EVENT DATE: 201804
